FAERS Safety Report 4822162-4 (Version None)
Quarter: 2005Q4

REPORT INFORMATION
  Report Type: 
  Country: None (occurrence: None)
  Receive Date: 20051103
  Receipt Date: 20051020
  Transmission Date: 20060501
  Serious: Yes (Death, Other)
  Sender: FDA-Public Use
  Company Number: 2005125268

PATIENT
  Age: 80 Year
  Sex: Female

DRUGS (7)
  1. MACUGEN [Suspect]
     Indication: CHOROIDAL NEOVASCULARISATION
     Dosage: 1 IN 6 WK, INTRAVENOUS
     Route: 042
     Dates: start: 20050314
  2. MACUGEN [Suspect]
     Indication: MACULAR DEGENERATION
     Dosage: 1 IN 6 WK, INTRAVENOUS
     Route: 042
     Dates: start: 20050314
  3. PROCARDIA [Concomitant]
  4. DETROL [Concomitant]
  5. HYDROCHLOROTHIAZIDE (HYDROCHLOLROTHIAZIDE) [Concomitant]
  6. NEXIUM [Concomitant]
  7. CARAFATE [Concomitant]

REACTIONS (5)
  - BLINDNESS [None]
  - CHOROIDAL HAEMORRHAGE [None]
  - LOWER LIMB FRACTURE [None]
  - NEOPLASM MALIGNANT [None]
  - PATHOLOGICAL FRACTURE [None]
